FAERS Safety Report 26218354 (Version 1)
Quarter: 2025Q4

REPORT INFORMATION
  Report Type: Report from Study
  Country: CA (occurrence: CA)
  Receive Date: 20251231
  Receipt Date: 20251231
  Transmission Date: 20260117
  Serious: Yes (Other)
  Sender: PFIZER
  Company Number: CA-PFIZER INC-202500251722

PATIENT
  Age: 64 Year
  Sex: Female
  Weight: 86 kg

DRUGS (3)
  1. IXIFI [Suspect]
     Active Substance: INFLIXIMAB-QBTX
     Indication: Rheumatoid arthritis
     Dosage: 300 MG, EVERY 7 WEEKS
     Route: 042
     Dates: start: 20250919
  2. IXIFI [Suspect]
     Active Substance: INFLIXIMAB-QBTX
     Dosage: 300 MG, EVERY 7 WEEKS
     Route: 042
     Dates: start: 20251107
  3. IXIFI [Suspect]
     Active Substance: INFLIXIMAB-QBTX
     Dosage: 300 MG, AFTER 7 WEEKS, (300 MG, EVERY 7 WEEKS)
     Route: 042
     Dates: start: 20251224

REACTIONS (2)
  - Anxiety [Unknown]
  - Off label use [Unknown]

NARRATIVE: CASE EVENT DATE: 20250101
